FAERS Safety Report 16282497 (Version 2)
Quarter: 2019Q2

REPORT INFORMATION
  Report Type: Spontaneous
  Country: AT (occurrence: AT)
  Receive Date: 20190507
  Receipt Date: 20190523
  Transmission Date: 20190711
  Serious: Yes (Hospitalization)
  Sender: FDA-Public Use
  Company Number: AT-BIOGEN-2019BI00731888

PATIENT
  Sex: Male

DRUGS (1)
  1. TYSABRI [Suspect]
     Active Substance: NATALIZUMAB
     Indication: RELAPSING-REMITTING MULTIPLE SCLEROSIS
     Route: 042

REACTIONS (15)
  - Disturbance in attention [Recovered/Resolved]
  - Thinking abnormal [Recovered/Resolved]
  - Abnormal behaviour [Unknown]
  - Acute psychosis [Recovered/Resolved]
  - Impulse-control disorder [Recovered/Resolved]
  - Delusion of grandeur [Recovered/Resolved]
  - Cognitive disorder [Recovered/Resolved]
  - Energy increased [Unknown]
  - Schizoaffective disorder [Recovered/Resolved]
  - Dysphoria [Recovered/Resolved]
  - Paranoia [Recovered/Resolved]
  - Anosognosia [Unknown]
  - Logorrhoea [Recovered/Resolved]
  - Affect lability [Recovered/Resolved]
  - Affect lability [Unknown]
